FAERS Safety Report 9945898 (Version 3)
Quarter: 2014Q3

REPORT INFORMATION
  Report Type: Spontaneous
  Country: US (occurrence: US)
  Receive Date: 20140303
  Receipt Date: 20140923
  Transmission Date: 20150326
  Serious: Yes (Other)
  Sender: FDA-Public Use
  Company Number: CHPA2014US003129

PATIENT
  Age: 76 Year
  Sex: Female

DRUGS (4)
  1. VOLTAREN [Suspect]
     Active Substance: DICLOFENAC SODIUM
     Indication: GOUT
     Dosage: AN AMOUNT IN HAND OR 4 GRAMS, UNK
     Route: 061
  2. TRAMADOL [Concomitant]
     Active Substance: TRAMADOL
     Indication: ARTHROPATHY
     Dosage: 50 MG, BID
     Route: 065
  3. VOLTAREN [Suspect]
     Active Substance: DICLOFENAC SODIUM
     Indication: ARTHRALGIA
     Dosage: AN AMOUNT IN HAND OR 4 GRAMS, BID PRN
     Route: 061
  4. VOLTAREN [Suspect]
     Active Substance: DICLOFENAC SODIUM
     Indication: OFF LABEL USE
     Dosage: HALF AN INDEX FINGER, IN THE MORNING
     Route: 061

REACTIONS (4)
  - Wrong technique in drug usage process [Unknown]
  - Therapeutic response changed [Unknown]
  - Tendon injury [Recovering/Resolving]
  - Drug administered at inappropriate site [Unknown]
